FAERS Safety Report 21951715 (Version 4)
Quarter: 2023Q4

REPORT INFORMATION
  Report Type: Spontaneous
  Country: SI (occurrence: None)
  Receive Date: 20230203
  Receipt Date: 20231206
  Transmission Date: 20240110
  Serious: Yes (Hospitalization, Disabling, Other)
  Sender: FDA-Public Use
  Company Number: 2023A027914

PATIENT
  Age: 68 Year
  Sex: Male
  Weight: 135 kg

DRUGS (8)
  1. ROSUVASTATIN [Suspect]
     Active Substance: ROSUVASTATIN
     Indication: Product used for unknown indication
     Route: 048
  2. ETORICOXIB [Suspect]
     Active Substance: ETORICOXIB
     Indication: Product used for unknown indication
  3. NEBIVOLOL [Concomitant]
     Active Substance: NEBIVOLOL
     Indication: Product used for unknown indication
  4. SPIRONOLACTONE [Concomitant]
     Active Substance: SPIRONOLACTONE
     Indication: Product used for unknown indication
  5. AMLODIPINE\PERINDOPRIL [Concomitant]
     Active Substance: AMLODIPINE\PERINDOPRIL
     Indication: Product used for unknown indication
     Dosage: DOSAGE FORM, 1/DAY
  6. FUROSEMIDE [Concomitant]
     Active Substance: FUROSEMIDE
     Indication: Product used for unknown indication
  7. APIXABAN [Concomitant]
     Active Substance: APIXABAN
     Indication: Product used for unknown indication
  8. ACETAMINOPHEN\TRAMADOL [Concomitant]
     Active Substance: ACETAMINOPHEN\TRAMADOL
     Indication: Pain

REACTIONS (9)
  - Disability [Unknown]
  - Acute kidney injury [Not Recovered/Not Resolved]
  - Asthenia [Unknown]
  - Acute myocardial infarction [Unknown]
  - Labelled drug-food interaction issue [Recovered/Resolved]
  - Contraindicated product administered [Recovered/Resolved]
  - Immune-mediated myositis [Unknown]
  - Abdominal pain [Unknown]
  - Rhabdomyolysis [Recovered/Resolved with Sequelae]
